FAERS Safety Report 5839244-0 (Version None)
Quarter: 2008Q3

REPORT INFORMATION
  Report Type: 
  Country: None (occurrence: None)
  Receive Date: 20080808
  Receipt Date: 20080804
  Transmission Date: 20090109
  Serious: Yes (Hospitalization)
  Sender: FDA-Public Use
  Company Number: DE-PFIZER INC-2008061065

PATIENT
  Sex: Male
  Weight: 85 kg

DRUGS (1)
  1. LYRICA [Suspect]
     Indication: PHANTOM PAIN
     Route: 048
     Dates: start: 20070101, end: 20080701

REACTIONS (2)
  - NIPPLE PAIN [None]
  - SEXUAL DYSFUNCTION [None]
